FAERS Safety Report 5339676-3 (Version None)
Quarter: 2007Q2

REPORT INFORMATION
  Report Type: 
  Country: None (occurrence: None)
  Receive Date: 20070525
  Receipt Date: 20070213
  Transmission Date: 20071010
  Serious: Yes (Hospitalization)
  Sender: FDA-Public Use
  Company Number: 2007S1000038

PATIENT
  Age: 13 Year
  Sex: Male
  Weight: 38.3 kg

DRUGS (14)
  1. INOMAX [Suspect]
     Indication: SICKLE CELL ANAEMIA
     Dosage: SEE IMAGE
     Route: 055
     Dates: start: 20070209, end: 20070209
  2. INOMAX [Suspect]
     Indication: SICKLE CELL ANAEMIA
     Dosage: SEE IMAGE
     Route: 055
     Dates: start: 20070209, end: 20070209
  3. INOMAX [Suspect]
     Indication: SICKLE CELL ANAEMIA
     Dosage: SEE IMAGE
     Route: 055
     Dates: start: 20070209, end: 20070210
  4. MORPHINE [Concomitant]
  5. KETOROLAC TROMETHAMINE [Concomitant]
  6. HYDROXYUREA [Concomitant]
  7. COLACE [Concomitant]
  8. ATARAX [Concomitant]
  9. ALBUTEROL [Concomitant]
  10. AZITHROMYCIN [Concomitant]
  11. TYLENOL [Concomitant]
  12. VANCOMYCIN HCL [Concomitant]
  13. BENADRYL ^ACHE^ [Concomitant]
  14. CEFAZEDONE [Concomitant]

REACTIONS (2)
  - ACUTE CHEST SYNDROME [None]
  - GENERAL PHYSICAL HEALTH DETERIORATION [None]
